FAERS Safety Report 4488791-5 (Version None)
Quarter: 2004Q3

REPORT INFORMATION
  Report Type: 
  Country: None (occurrence: None)
  Receive Date: 20040921
  Receipt Date: 20040301
  Transmission Date: 20050211
  Serious: Yes (Other)
  Sender: FDA-Public Use
  Company Number: 163-20785-04030026

PATIENT
  Age: 50 Year
  Sex: Female
  Weight: 50.3493 kg

DRUGS (8)
  1. THALOMID [Suspect]
     Indication: BILE DUCT CANCER
     Dosage: 150 MG, BID, ORAL
     Route: 048
     Dates: start: 20040203, end: 20040220
  2. DOCETAXEL (DOCETAXEL) [Suspect]
     Indication: BILE DUCT CANCER
     Dosage: 30 MG, WEEKLY
     Dates: start: 20040210, end: 20040217
  3. HYDROCHLOROTHIAZIDE [Suspect]
     Indication: HYPERTENSION
  4. SYNTHROID [Concomitant]
  5. COUMADIN [Concomitant]
  6. DULCOLAX [Concomitant]
  7. DIAZIDE (GLICLAZIDE) [Concomitant]
  8. DECADRON [Concomitant]

REACTIONS (1)
  - RASH [None]
